FAERS Safety Report 4333723-3 (Version None)
Quarter: 2004Q2

REPORT INFORMATION
  Report Type: 
  Country: None (occurrence: None)
  Receive Date: 20040402
  Receipt Date: 20040325
  Transmission Date: 20050107
  Serious: Yes (Death)
  Sender: FDA-Public Use
  Company Number: KDL037704

PATIENT
  Age: 57 Year
  Sex: Female

DRUGS (15)
  1. EPOGEN [Suspect]
     Indication: ANAEMIA OF MALIGNANT DISEASE
     Dosage: 60000 U, WEEKLY, SC
     Route: 058
     Dates: start: 20030101
  2. GABAPENTIN [Concomitant]
  3. CELECOXIB [Concomitant]
  4. TAMOXIFEN CITRATE [Concomitant]
  5. CHROMAGEN FORTE [Concomitant]
  6. OPRELVEKIN [Concomitant]
  7. CISPLATIN [Concomitant]
  8. IRINOTECAN HYDROCHLORIDE [Concomitant]
  9. DOXORUBICIN HYDROCHLORIDE [Concomitant]
  10. ETOPOSIDE [Concomitant]
  11. PACLITAXEL [Concomitant]
  12. CARBOPLATIN [Concomitant]
  13. GEMCITABINE HCL [Concomitant]
  14. NEUPOGEN [Concomitant]
  15. FLUOROURACIL [Concomitant]

REACTIONS (5)
  - ANAEMIA [None]
  - BONE MARROW DEPRESSION [None]
  - IRON DEFICIENCY [None]
  - THROMBOCYTOPENIA [None]
  - WHITE BLOOD CELL COUNT INCREASED [None]
